FAERS Safety Report 13523605 (Version 1)
Quarter: 2017Q2

REPORT INFORMATION
  Report Type: Spontaneous
  Country: US (occurrence: US)
  Receive Date: 20170508
  Receipt Date: 20170508
  Transmission Date: 20170830
  Serious: No
  Sender: FDA-Public Use
  Company Number: US-VIFOR (INTERNATIONAL) INC.-VIT-2017-02165

PATIENT
  Age: 54 Year
  Sex: Male

DRUGS (5)
  1. VELTASSA [Suspect]
     Active Substance: PATIROMER
     Indication: HYPERKALAEMIA
     Route: 048
     Dates: start: 201604
  2. HUMULIN NOS [Concomitant]
     Active Substance: INSULIN HUMAN
  3. SIMVASTATIN. [Concomitant]
     Active Substance: SIMVASTATIN
  4. AMLODIPINE [Concomitant]
     Active Substance: AMLODIPINE BESYLATE
  5. ACETYLSALICYLIC ACID [Concomitant]
     Active Substance: ASPIRIN

REACTIONS (3)
  - Dyspnoea [Unknown]
  - Cough [Unknown]
  - Lung disorder [Unknown]

NARRATIVE: CASE EVENT DATE: 201701
